FAERS Safety Report 18654532 (Version 1)
Quarter: 2020Q4

REPORT INFORMATION
  Report Type: Spontaneous
  Country: US (occurrence: US)
  Receive Date: 20201223
  Receipt Date: 20201223
  Transmission Date: 20210114
  Serious: Yes (Hospitalization)
  Sender: FDA-Public Use
  Company Number: None

PATIENT
  Age: 67 Year
  Sex: Female
  Weight: 97.2 kg

DRUGS (4)
  1. NEORAL [Suspect]
     Active Substance: CYCLOSPORINE
     Indication: COVID-19
     Route: 048
     Dates: start: 20201212, end: 20201213
  2. OXYGEN SUPPLEMENTATION [Concomitant]
  3. REMDESIVIR. [Concomitant]
     Active Substance: REMDESIVIR
  4. DECADRON [Concomitant]
     Active Substance: DEXAMETHASONE

REACTIONS (3)
  - Respiratory failure [None]
  - Transaminases increased [None]
  - Immunosuppressant drug level increased [None]

NARRATIVE: CASE EVENT DATE: 20201214
